FAERS Safety Report 4379143-7 (Version None)
Quarter: 2004Q2

REPORT INFORMATION
  Report Type: 
  Country: None (occurrence: None)
  Receive Date: 20040610
  Receipt Date: 20040526
  Transmission Date: 20050107
  Serious: Yes (Hospitalization)
  Sender: FDA-Public Use
  Company Number: 2004-0007110

PATIENT
  Sex: Male
  Weight: 62 kg

DRUGS (16)
  1. VIREAD [Suspect]
     Indication: HIV INFECTION
     Dosage: 1 IN 1 D, ORAL
     Route: 048
     Dates: start: 20031119
  2. CAELYX (DOXORUBICIN HYDROCHLORIDE) (INJECTION) [Suspect]
     Indication: KAPOSI'S SARCOMA
     Dosage: INTRAVENOUS
     Dates: start: 20020101, end: 20020101
  3. KALETRA [Suspect]
     Indication: HIV INFECTION
     Dosage: ORAL
     Route: 048
     Dates: start: 20020101
  4. VIRACEPT [Suspect]
     Indication: HIV INFECTION
     Dates: start: 19950101, end: 20030101
  5. MOTILIUM [Suspect]
     Dosage: ORAL
     Route: 048
     Dates: start: 20031118
  6. ZOPHEN (ONDANSETRON HYDROCHLORIDE) [Suspect]
     Dosage: ORAL
     Route: 048
     Dates: start: 20031118
  7. ZIAGEN [Suspect]
     Indication: HIV INFECTION
     Dosage: 300 MG, 2 IN 1 D, ORAL
     Route: 048
     Dates: start: 20031119
  8. ZALCITABINE (ZALCITABINE) [Concomitant]
  9. LAMIVUDINE (LAMIVUDINE) [Concomitant]
  10. EFAVIRENZ (EFAVIRENZ) [Concomitant]
  11. STAVUDINE (STAVUDINE) [Concomitant]
  12. INDINAVIR (INDINAVIR) [Concomitant]
  13. NELFINAVIR (NELFINAVIR) [Concomitant]
  14. RITONAVIR (RITONAVIR) [Concomitant]
  15. DIDANOSINE (DIDANOSINE) [Concomitant]
  16. IDOXURIDINE (IDOXURIDINE) [Concomitant]

REACTIONS (10)
  - ALANINE AMINOTRANSFERASE INCREASED [None]
  - ASPARTATE AMINOTRANSFERASE INCREASED [None]
  - BLOOD ALKALINE PHOSPHATASE INCREASED [None]
  - DRUG INEFFECTIVE [None]
  - GAMMA-GLUTAMYLTRANSFERASE INCREASED [None]
  - HEPATIC FUNCTION ABNORMAL [None]
  - HYPERAESTHESIA [None]
  - NEURALGIA [None]
  - PARAESTHESIA [None]
  - RENAL FAILURE [None]
